FAERS Safety Report 8979949 (Version 1)
Quarter: 2012Q4

REPORT INFORMATION
  Report Type: 
  Country: US (occurrence: US)
  Receive Date: 20121212
  Receipt Date: 20121212
  Transmission Date: 20130627
  Serious: Yes (Death)
  Sender: FDA-Public Use
  Company Number: US-ASTELLAS-1115445

PATIENT
  Sex: Female

DRUGS (2)
  1. TARCEVA [Suspect]
     Indication: LUNG NEOPLASM MALIGNANT
     Route: 065
     Dates: start: 200908
  2. TARCEVA [Suspect]
     Indication: METASTASES TO NERVOUS SYSTEM

REACTIONS (2)
  - Death [Fatal]
  - Malaise [Unknown]
